FAERS Safety Report 10410848 (Version 2)
Quarter: 2014Q4

REPORT INFORMATION
  Report Type: Spontaneous
  Country: US (occurrence: US)
  Receive Date: 20140826
  Receipt Date: 20141205
  Transmission Date: 20150528
  Serious: No
  Sender: FDA-Public Use
  Company Number: US-BRISTOL-MYERS SQUIBB COMPANY-20942678

PATIENT
  Age: 55 Year
  Sex: Male

DRUGS (2)
  1. KENALOG-10 [Suspect]
     Active Substance: TRIAMCINOLONE ACETONIDE
     Indication: CARPAL TUNNEL SYNDROME
     Dosage: KENALOG-10 5 MG MIXED WITH LIDOCAINE ADMINISTERED IN RIGHT WRIST MEDIAN NERVE.
     Dates: start: 20140528
  2. LIDOCAINE. [Suspect]
     Active Substance: LIDOCAINE
     Indication: CARPAL TUNNEL SYNDROME
     Dosage: ROUTE: INTRANEURALLY
     Dates: start: 20140528

REACTIONS (1)
  - Rash pruritic [Unknown]

NARRATIVE: CASE EVENT DATE: 20140531
